FAERS Safety Report 6463895-6 (Version None)
Quarter: 2009Q4

REPORT INFORMATION
  Report Type: 
  Country: None (occurrence: None)
  Receive Date: 20091130
  Receipt Date: 20091130
  Transmission Date: 20100525
  Serious: No
  Sender: FDA-Public Use
  Company Number: None

PATIENT
  Age: 47 Year
  Sex: Female
  Weight: 81.6475 kg

DRUGS (1)
  1. ALDARA [Suspect]
     Indication: SQUAMOUS CELL CARCINOMA
     Dosage: SMALL DROP APPLY TO LESION AT BEDTIME AND SURROUNDING SKIN X 3 WEEKS
     Dates: start: 20091007, end: 20091028

REACTIONS (1)
  - APPLICATION SITE ERYTHEMA [None]
